FAERS Safety Report 10363383 (Version 1)
Quarter: 2014Q1

REPORT INFORMATION
  Report Type: Spontaneous
  Country: US (occurrence: None)
  Receive Date: 20140306
  Receipt Date: 20140306
  Transmission Date: 20141002
  Serious: Yes (Hospitalization, Other)
  Sender: FDA-Public Use
  Company Number: 163-21880-13020166

PATIENT
  Age: 69 Year
  Sex: Female

DRUGS (9)
  1. REVLIMID(LENALIDOMIDE)(5 MILLIGRAM, CAPSULES) [Suspect]
     Indication: PLASMA CELL MYELOMA
     Dosage: 14 IN 14D
     Route: 048
     Dates: start: 20120817
  2. CARVEDILOL(CARVEDILOL)(UNKNOWN) [Concomitant]
  3. LOMOTIL(LOMOTIL)(UNKNOWN)? [Concomitant]
  4. OMEPRAZOLE(OMEPRAZOLE)(UNKNOWN)? [Concomitant]
  5. PROCRIT(ERYTHROPOIETIN)(UNKNOWN)? [Concomitant]
  6. RENAPLEX-D(RENAPLEX)(UNKNOWN)? [Concomitant]
  7. VELCADE(BORTEZOMIB)(UNKNOWN)? [Concomitant]
  8. XANAX(ALPRAZOLAM)(UNKNOWN) [Concomitant]
  9. ZITHROMAX(AZITHROMYCIN)(UNKNOWN) [Concomitant]

REACTIONS (2)
  - Pneumonia [None]
  - Influenza [None]
